FAERS Safety Report 4604209-3 (Version None)
Quarter: 2005Q1

REPORT INFORMATION
  Report Type: 
  Country: None (occurrence: None)
  Receive Date: 20050214
  Receipt Date: 20050105
  Transmission Date: 20050727
  Serious: No
  Sender: FDA-Public Use
  Company Number: USA050187634

PATIENT
  Age: 85 Year
  Sex: Male

DRUGS (1)
  1. CIALIS [Suspect]
     Dosage: 10 MG

REACTIONS (2)
  - DIZZINESS [None]
  - SYNCOPE [None]
